FAERS Safety Report 12557256 (Version 2)
Quarter: 2016Q3

REPORT INFORMATION
  Report Type: Spontaneous
  Country: GR (occurrence: GR)
  Receive Date: 20160714
  Receipt Date: 20160727
  Transmission Date: 20161109
  Serious: Yes (Death, Hospitalization)
  Sender: FDA-Public Use
  Company Number: GR-DSJP-DSE-2016-124378

PATIENT

DRUGS (4)
  1. XANAX [Concomitant]
     Active Substance: ALPRAZOLAM
     Indication: PRODUCT USED FOR UNKNOWN INDICATION
     Dosage: 0.25 MG, AS NEEDED
  2. ELIQUIS [Suspect]
     Active Substance: APIXABAN
     Indication: ATRIAL FIBRILLATION
     Dosage: 2.5 MG, UNK
     Dates: start: 201510, end: 2016
  3. PROPAFENONE HCL [Suspect]
     Active Substance: PROPAFENONE HYDROCHLORIDE
     Indication: PRODUCT USED FOR UNKNOWN INDICATION
     Dosage: 150 MG, BID
     Dates: start: 201511
  4. OLMETEC PLUS 20 MG / 12,5 MG [Suspect]
     Active Substance: HYDROCHLOROTHIAZIDE\OLMESARTAN MEDOXOMIL
     Indication: BLOOD PRESSURE INCREASED
     Dosage: 20/12.5 MG, UNK
     Route: 048
     Dates: start: 201504

REACTIONS (5)
  - Lethargy [Unknown]
  - Headache [Unknown]
  - Death [Fatal]
  - Cerebral haemorrhage [Unknown]
  - Cerebral haematoma [Unknown]

NARRATIVE: CASE EVENT DATE: 2016
